FAERS Safety Report 4752609-3 (Version None)
Quarter: 2005Q3

REPORT INFORMATION
  Report Type: 
  Country: None (occurrence: None)
  Receive Date: 20050824
  Receipt Date: 20050811
  Transmission Date: 20060218
  Serious: Yes (Other)
  Sender: FDA-Public Use
  Company Number: 2005081845

PATIENT
  Sex: Female

DRUGS (6)
  1. CELEBREX [Suspect]
     Indication: CROHN'S DISEASE
  2. CELEBREX [Suspect]
     Indication: OSTEOARTHRITIS
  3. CELEBREX [Suspect]
     Indication: RHEUMATOID ARTHRITIS
  4. LEXAPRO [Concomitant]
  5. WELLBUTRIN SR [Concomitant]
  6. LIDODERM PATCH (LIDOCAINE HYDROCHLORIDE) [Concomitant]

REACTIONS (1)
  - THROMBOSIS [None]
